FAERS Safety Report 21138872 (Version 1)
Quarter: 2022Q3

REPORT INFORMATION
  Report Type: Spontaneous
  Country: SE (occurrence: SE)
  Receive Date: 20220727
  Receipt Date: 20220727
  Transmission Date: 20221027
  Serious: Yes (Other)
  Sender: FDA-Public Use
  Company Number: None

PATIENT
  Age: 49 Year
  Sex: Female
  Weight: 82 kg

DRUGS (1)
  1. MIRENA [Suspect]
     Active Substance: LEVONORGESTREL
     Indication: Heavy menstrual bleeding
     Dosage: 20?G/DAY
     Route: 015
     Dates: start: 20190502, end: 20220518

REACTIONS (12)
  - Vaginal discharge [Recovered/Resolved]
  - Rhinitis [Recovered/Resolved]
  - Arrhythmia [Recovered/Resolved]
  - Back pain [Recovered/Resolved]
  - Extrasystoles [Recovered/Resolved]
  - Arthralgia [Recovered/Resolved]
  - Nasal congestion [Recovered/Resolved]
  - Urine output decreased [Recovered/Resolved]
  - Vaginal haemorrhage [Recovered/Resolved]
  - Fluid retention [Recovering/Resolving]
  - Hypoaesthesia [Unknown]
  - Peripheral swelling [Recovering/Resolving]

NARRATIVE: CASE EVENT DATE: 20190601
